FAERS Safety Report 4343579-0 (Version None)
Quarter: 2004Q2

REPORT INFORMATION
  Report Type: 
  Country: None (occurrence: None)
  Receive Date: 20040421
  Receipt Date: 20040421
  Transmission Date: 20050107
  Serious: Yes (Hospitalization)
  Sender: FDA-Public Use
  Company Number: None

PATIENT
  Age: 73 Year
  Sex: Male
  Weight: 103.8737 kg

DRUGS (13)
  1. LITHIUM CARBONATE [Suspect]
     Indication: BIPOLAR DISORDER
     Dosage: SEE IMAGE
  2. . [Concomitant]
  3. AGGRENOX [Concomitant]
  4. PROSCAR [Concomitant]
  5. GABAPENTIN [Concomitant]
  6. GATIFLOXACIN [Concomitant]
  7. GLIMEPIRIDE [Concomitant]
  8. INSULIN [Concomitant]
  9. ATROVENT [Concomitant]
  10. LISINOPRIL [Concomitant]
  11. PIOGLITAZONE HCL [Concomitant]
  12. TERAZOSIN HCL [Concomitant]
  13. METFORMIN HCL [Concomitant]

REACTIONS (9)
  - COMA [None]
  - DRUG LEVEL INCREASED [None]
  - DRUG TOXICITY [None]
  - HAEMODIALYSIS [None]
  - HYPOTENSION [None]
  - LETHARGY [None]
  - MEDICATION ERROR [None]
  - MENTAL STATUS CHANGES [None]
  - RENAL FAILURE ACUTE [None]
